FAERS Safety Report 9968394 (Version 1)
Quarter: 2014Q1

REPORT INFORMATION
  Report Type: Report from Study
  Country: US (occurrence: US)
  Receive Date: 20140306
  Receipt Date: 20140306
  Transmission Date: 20141002
  Serious: No
  Sender: FDA-Public Use
  Company Number: US-ABBVIE-13P-163-1143089-00

PATIENT
  Age: 58 Year
  Sex: Female

DRUGS (2)
  1. HUMIRA [Suspect]
     Indication: PSORIASIS
     Dates: start: 20130711, end: 20130711
  2. LEVOTHYROXINE [Concomitant]
     Indication: HYPOTHYROIDISM

REACTIONS (7)
  - Fatigue [Unknown]
  - Hypoaesthesia oral [Recovered/Resolved]
  - Bronchitis [Recovered/Resolved]
  - Paraesthesia oral [Recovered/Resolved]
  - Paraesthesia oral [Not Recovered/Not Resolved]
  - Paraesthesia oral [Not Recovered/Not Resolved]
  - Pyrexia [Recovered/Resolved]
